FAERS Safety Report 11189519 (Version 1)
Quarter: 2015Q2

REPORT INFORMATION
  Report Type: Spontaneous
  Country: ES (occurrence: None)
  Receive Date: 20150611
  Receipt Date: 20150611
  Transmission Date: 20150821
  Serious: Yes (Hospitalization)
  Sender: FDA-Public Use
  Company Number: NSR_02133_2015

PATIENT
  Age: 81 Year
  Sex: Female

DRUGS (9)
  1. ATORVASTATIN [Concomitant]
     Active Substance: ATORVASTATIN
  2. TRAMADOL (TRAMADOL) [Suspect]
     Active Substance: TRAMADOL
     Indication: BACK PAIN
     Dosage: DF
  3. ESCITALOPRAM [Suspect]
     Active Substance: ESCITALOPRAM OXALATE
     Indication: DEPRESSION
     Dosage: (10; 1/0/0)
  4. ETORICOXIB (ETORICOXIB) [Suspect]
     Active Substance: ETORICOXIB
     Indication: BACK PAIN
     Dosage: (90; 1/0/0)
  5. MONTELUKAST [Concomitant]
     Active Substance: MONTELUKAST SODIUM
  6. SALBUTAMOL [Concomitant]
     Active Substance: ALBUTEROL
  7. TRAMADOL AND ACETAMINOPHEN [Suspect]
     Active Substance: ACETAMINOPHEN\TRAMADOL HYDROCHLORIDE
     Indication: BACK PAIN
     Dosage: (1/1/1)
  8. DEFLAZACORT [Concomitant]
     Active Substance: DEFLAZACORT
  9. OMEPRAZOLE. [Concomitant]
     Active Substance: OMEPRAZOLE

REACTIONS (3)
  - Hemianopia [None]
  - Drug interaction [None]
  - Aphasia [None]
